FAERS Safety Report 23098537 (Version 2)
Quarter: 2023Q4

REPORT INFORMATION
  Report Type: Spontaneous
  Country: US (occurrence: US)
  Receive Date: 20231023
  Receipt Date: 20231026
  Transmission Date: 20240110
  Serious: No
  Sender: FDA-Public Use
  Company Number: US-BRISTOL-MYERS SQUIBB COMPANY-2023-150490

PATIENT
  Age: 53 Year
  Sex: Female
  Weight: 72.57 kg

DRUGS (1)
  1. POMALYST [Suspect]
     Active Substance: POMALIDOMIDE
     Indication: Plasma cell myeloma
     Dosage: FREQUENCY: 2 WEEKS ON,1 WEEK OFF/DAILY X 14 DAYS ON, 7 DAYS OFF
     Route: 048
     Dates: start: 20230801

REACTIONS (5)
  - White blood cell count decreased [Unknown]
  - Off label use [Unknown]
  - Bacterial infection [Unknown]
  - Diarrhoea [Unknown]
  - Light chain analysis increased [Unknown]
